FAERS Safety Report 11369524 (Version 1)
Quarter: 2015Q3

REPORT INFORMATION
  Report Type: Spontaneous
  Country: US (occurrence: US)
  Receive Date: 20150812
  Receipt Date: 20150812
  Transmission Date: 20151125
  Serious: No
  Sender: FDA-Public Use
  Company Number: US-JNJFOC-20150514658

PATIENT

DRUGS (1)
  1. TOPAMAX [Suspect]
     Active Substance: TOPIRAMATE
     Indication: SEIZURE
     Route: 048

REACTIONS (5)
  - Weight decreased [Recovered/Resolved]
  - Sleep terror [Unknown]
  - Hallucination [Unknown]
  - Generalised anxiety disorder [Unknown]
  - Agoraphobia [Unknown]
